FAERS Safety Report 20539877 (Version 1)
Quarter: 2022Q1

REPORT INFORMATION
  Report Type: Report from Study
  Country: US (occurrence: US)
  Receive Date: 20220302
  Receipt Date: 20220302
  Transmission Date: 20220423
  Serious: Yes (Other)
  Sender: FDA-Public Use
  Company Number: US-JNJFOC-20211100259

PATIENT
  Sex: Male

DRUGS (3)
  1. ZYTIGA [Suspect]
     Active Substance: ABIRATERONE ACETATE
     Indication: Prostate cancer metastatic
     Route: 048
  2. NICLOSAMIDE [Suspect]
     Active Substance: NICLOSAMIDE
     Indication: Prostate cancer metastatic
     Route: 048
  3. PREDNISONE [Suspect]
     Active Substance: PREDNISONE
     Indication: Prostate cancer metastatic
     Route: 048

REACTIONS (20)
  - Fatigue [Unknown]
  - Hypoalbuminaemia [Unknown]
  - Anaemia [Unknown]
  - Hyperglycaemia [Unknown]
  - Abdominal pain [Unknown]
  - Fall [Unknown]
  - Diarrhoea [Unknown]
  - Headache [Unknown]
  - Decreased appetite [Unknown]
  - Dyspepsia [Unknown]
  - Constipation [Unknown]
  - Upper respiratory tract infection [Unknown]
  - Nausea [Unknown]
  - Pruritus [Unknown]
  - Supraventricular tachycardia [Unknown]
  - Mucosal inflammation [Unknown]
  - Oedema peripheral [Unknown]
  - Flatulence [Unknown]
  - Vomiting [Unknown]
  - Insomnia [Unknown]
